FAERS Safety Report 18528946 (Version 1)
Quarter: 2020Q4

REPORT INFORMATION
  Report Type: Spontaneous
  Country: SA (occurrence: SA)
  Receive Date: 20201120
  Receipt Date: 20201120
  Transmission Date: 20210114
  Serious: Yes (Life-Threatening, Other)
  Sender: FDA-Public Use
  Company Number: SA-JNJFOC-20201121808

PATIENT
  Age: 39 Year
  Sex: Female
  Weight: 56 kg

DRUGS (2)
  1. FENTANYL. [Suspect]
     Active Substance: FENTANYL
     Indication: ABDOMINAL PAIN UPPER
     Route: 060
  2. DUROGESIC [Suspect]
     Active Substance: FENTANYL
     Indication: ABDOMINAL PAIN UPPER
     Route: 062

REACTIONS (6)
  - Therapy non-responder [Unknown]
  - Constipation [Unknown]
  - Pruritus [Unknown]
  - Coma [Unknown]
  - Nausea [Unknown]
  - Somnolence [Unknown]
